FAERS Safety Report 9105741 (Version 1)
Quarter: 2013Q1

REPORT INFORMATION
  Report Type: Spontaneous
  Country: US (occurrence: US)
  Receive Date: 20130220
  Receipt Date: 20130220
  Transmission Date: 20140127
  Serious: No
  Sender: FDA-Public Use
  Company Number: US-PFIZER INC-2013061020

PATIENT
  Age: 64 Year
  Sex: Female
  Weight: 53.06 kg

DRUGS (2)
  1. LEVOXYL [Suspect]
     Indication: THYROID DISORDER
     Dosage: 0.112 MG, 5X/WEEK
  2. LIPITOR [Concomitant]
     Indication: BLOOD CHOLESTEROL INCREASED
     Dosage: 10 MG, 1X/DAY

REACTIONS (3)
  - Drug interaction [Unknown]
  - Drug ineffective [Not Recovered/Not Resolved]
  - Weight increased [Unknown]
